FAERS Safety Report 8039566-1 (Version None)
Quarter: 2012Q1

REPORT INFORMATION
  Report Type: 
  Country: None (occurrence: None)
  Receive Date: 20120111
  Receipt Date: 20111216
  Transmission Date: 20120608
  Serious: No
  Sender: FDA-Public Use
  Company Number: US-AMGEN-USASP2011018567

PATIENT
  Age: 55 Year
  Sex: Female
  Weight: 172.34 kg

DRUGS (2)
  1. ENBREL [Suspect]
     Indication: PSORIATIC ARTHROPATHY
  2. ENBREL [Suspect]
     Indication: PSORIASIS
     Dosage: 50 MG, Q2WK
     Route: 058
     Dates: start: 20110317, end: 20110422

REACTIONS (6)
  - SYSTEMIC LUPUS ERYTHEMATOSUS [None]
  - INJECTION SITE PRURITUS [None]
  - PYREXIA [None]
  - INJECTION SITE ERYTHEMA [None]
  - INJECTION SITE WARMTH [None]
  - PNEUMONIA [None]
